FAERS Safety Report 6907023-9 (Version None)
Quarter: 2010Q3

REPORT INFORMATION
  Report Type: 
  Country: None (occurrence: None)
  Receive Date: 20100804
  Receipt Date: 20071203
  Transmission Date: 20110219
  Serious: No
  Sender: FDA-Public Use
  Company Number: US-PFIZER INC-2007068032

PATIENT
  Sex: Female
  Weight: 78 kg

DRUGS (2)
  1. NARDIL [Suspect]
     Indication: MENTAL DISORDER
     Route: 048
     Dates: start: 19970101
  2. RISPERDAL [Concomitant]
     Indication: SLEEP DISORDER

REACTIONS (8)
  - ABDOMINAL PAIN UPPER [None]
  - EYE DISORDER [None]
  - FATIGUE [None]
  - GAIT DISTURBANCE [None]
  - MALAISE [None]
  - PAIN OF SKIN [None]
  - RASH [None]
  - WEIGHT DECREASED [None]
